FAERS Safety Report 21999914 (Version 1)
Quarter: 2023Q1

REPORT INFORMATION
  Report Type: Spontaneous
  Country: US (occurrence: US)
  Receive Date: 20230216
  Receipt Date: 20230216
  Transmission Date: 20230417
  Serious: Yes (Hospitalization, Other)
  Sender: FDA-Public Use
  Company Number: US-JNJFOC-20230223538

PATIENT
  Age: 73 Year
  Sex: Male
  Weight: 73 kg

DRUGS (10)
  1. XARELTO [Suspect]
     Active Substance: RIVAROXABAN
     Indication: Product used for unknown indication
     Route: 048
  2. MIFEPRISTONE [Suspect]
     Active Substance: MIFEPRISTONE
     Indication: Cushing^s syndrome
     Route: 048
     Dates: start: 20170913, end: 20171025
  3. MIFEPRISTONE [Suspect]
     Active Substance: MIFEPRISTONE
     Route: 048
     Dates: start: 20171026
  4. GABAPENTIN [Concomitant]
     Active Substance: GABAPENTIN
  5. ASPIRIN [Concomitant]
     Active Substance: ASPIRIN
  6. VALSARTAN [Concomitant]
     Active Substance: VALSARTAN
  7. AMILORIDE [Concomitant]
     Active Substance: AMILORIDE
  8. ENTRESTO [Concomitant]
     Active Substance: SACUBITRIL\VALSARTAN
  9. LOSARTAN [Concomitant]
     Active Substance: LOSARTAN
  10. EPLERENONE [Concomitant]
     Active Substance: EPLERENONE

REACTIONS (8)
  - Aortic aneurysm [Unknown]
  - Renal disorder [Not Recovered/Not Resolved]
  - Renal artery occlusion [Unknown]
  - Hypervolaemia [Recovered/Resolved]
  - Cardiac failure congestive [Not Recovered/Not Resolved]
  - Blood pressure fluctuation [Unknown]
  - Oedema peripheral [Not Recovered/Not Resolved]
  - Blood potassium decreased [Recovered/Resolved]

NARRATIVE: CASE EVENT DATE: 20220101
